FAERS Safety Report 9128633 (Version 1)
Quarter: 2013Q1

REPORT INFORMATION
  Report Type: Spontaneous
  Country: ES (occurrence: ES)
  Receive Date: 20130228
  Receipt Date: 20130228
  Transmission Date: 20140127
  Serious: Yes (Hospitalization)
  Sender: FDA-Public Use
  Company Number: ES-ELI_LILLY_AND_COMPANY-ES201302007161

PATIENT
  Sex: Female

DRUGS (2)
  1. FORSTEO [Suspect]
  2. MORPHINE [Interacting]

REACTIONS (2)
  - Foot fracture [Unknown]
  - Drug interaction [Unknown]
